FAERS Safety Report 6641786-5 (Version None)
Quarter: 2010Q1

REPORT INFORMATION
  Report Type: 
  Country: None (occurrence: None)
  Receive Date: 20100319
  Receipt Date: 20100307
  Transmission Date: 20100710
  Serious: Yes (Hospitalization)
  Sender: FDA-Public Use
  Company Number: IT-RANBAXY-2010RR-32486

PATIENT
  Sex: Male

DRUGS (3)
  1. PARACETAMOL [Suspect]
  2. NIMESULIDE [Suspect]
  3. AMOXICILLIN TRIHYDRATE/CLAVULANIC ACID [Suspect]

REACTIONS (3)
  - ERYTHRODERMIC PSORIASIS [None]
  - PETECHIAE [None]
  - VASCULITIS [None]
